FAERS Safety Report 8866137 (Version 1)
Quarter: 2012Q4

REPORT INFORMATION
  Report Type: 
  Country: GB (occurrence: GB)
  Receive Date: 20121025
  Receipt Date: 20121025
  Transmission Date: 20130627
  Serious: Yes (Death)
  Sender: FDA-Public Use
  Company Number: GB-MYLANLABS-2012S1000675

PATIENT
  Age: 21 Year
  Sex: Male
  Weight: 110 kg

DRUGS (3)
  1. RISPERIDONE [Suspect]
     Indication: PRODUCT USED FOR UNKNOWN INDICATION
     Route: 048
     Dates: start: 2006
  2. LAMOTRIGINE [Concomitant]
     Indication: EPILEPSY
     Dates: start: 20110810
  3. LAMOTRIGINE [Concomitant]
     Indication: EPILEPSY
     Dates: start: 2011

REACTIONS (3)
  - Epilepsy [Fatal]
  - Headache [Fatal]
  - Anxiety [Fatal]
